FAERS Safety Report 13506852 (Version 1)
Quarter: 2017Q2

REPORT INFORMATION
  Report Type: Spontaneous
  Country: US (occurrence: US)
  Receive Date: 20170502
  Receipt Date: 20170502
  Transmission Date: 20170830
  Serious: No
  Sender: FDA-Public Use
  Company Number: US-BAUSCH-BL-2016-005914

PATIENT
  Sex: Male

DRUGS (1)
  1. LOTEMAX [Suspect]
     Active Substance: LOTEPREDNOL ETABONATE
     Indication: EYE INFLAMMATION
     Dosage: 1 DROP IN EACH EYE
     Route: 047

REACTIONS (2)
  - Off label use [Unknown]
  - Intraocular pressure increased [Not Recovered/Not Resolved]
